FAERS Safety Report 10180572 (Version 2)
Quarter: 2014Q2

REPORT INFORMATION
  Report Type: Spontaneous
  Country: US (occurrence: US)
  Receive Date: 20140519
  Receipt Date: 20140519
  Transmission Date: 20141212
  Serious: No
  Sender: FDA-Public Use
  Company Number: US-AMGEN INC.-USASP2014011975

PATIENT
  Age: 77 Year
  Sex: Female
  Weight: 61.22 kg

DRUGS (9)
  1. PROLIA [Suspect]
     Indication: OSTEOPOROSIS POSTMENOPAUSAL
     Dosage: Q6MO
     Route: 058
     Dates: start: 20110421, end: 20130618
  2. WELLBUTRIN [Concomitant]
     Dosage: 300 MG, UNK
  3. LEVOXYL [Concomitant]
     Dosage: 75 MUG, UNK
  4. SPIRONOLACTONE [Concomitant]
     Dosage: 25 MG, UNK
  5. CRESTOR [Concomitant]
     Indication: HYPERLIPIDAEMIA
     Dosage: 5 MG, QD
     Route: 048
  6. LISINOPRIL [Concomitant]
     Indication: HYPERTENSION
     Dosage: 20 MG, QD
     Route: 048
  7. BUPROPION HYDROCHLORIDE [Concomitant]
     Indication: DEPRESSION
     Dosage: 300 MG, QD
     Route: 048
  8. LEVOTHYROXINE [Concomitant]
     Indication: HYPOTHYROIDISM
     Dosage: 10 MUG, QD
     Route: 048
  9. RANITIDINE [Concomitant]
     Indication: GASTRITIS
     Dosage: 150 MG, AS NECESSARY
     Route: 048

REACTIONS (5)
  - Tooth loss [Unknown]
  - Dental caries [Unknown]
  - Dental care [Unknown]
  - Bone resorption test abnormal [Unknown]
  - Blood calcium decreased [Unknown]
